FAERS Safety Report 7629055-8 (Version None)
Quarter: 2011Q3

REPORT INFORMATION
  Report Type: 
  Country: None (occurrence: None)
  Receive Date: 20110722
  Receipt Date: 20110713
  Transmission Date: 20111222
  Serious: Yes (Congenital Anomaly, Other)
  Sender: FDA-Public Use
  Company Number: US-PFIZER INC-2008049855

PATIENT
  Sex: Male
  Weight: 3 kg

DRUGS (8)
  1. ORTHO TRI-CYCLEN [Concomitant]
     Dosage: UNK
     Route: 064
  2. ZOLOFT [Suspect]
     Indication: DEPRESSION
     Dosage: 100 MG, 1X/DAY
     Route: 064
     Dates: start: 20050101
  3. ADVAIR DISKUS 100/50 [Concomitant]
     Dosage: 500/50MCG
     Route: 064
  4. MOTRIN [Concomitant]
     Dosage: UNK
     Route: 064
  5. TYLENOL-500 [Concomitant]
     Dosage: UNK
     Route: 064
  6. FLONASE [Concomitant]
     Dosage: UNK
     Route: 064
  7. MONTELUKAST [Concomitant]
     Dosage: 10 MG, 1X/DAY
     Route: 064
  8. SALBUTAMOL [Concomitant]
     Dosage: UNK
     Route: 064

REACTIONS (13)
  - KIDNEY ENLARGEMENT [None]
  - CEREBRAL HAEMORRHAGE [None]
  - CONVULSION [None]
  - HYPOXIC-ISCHAEMIC ENCEPHALOPATHY [None]
  - HEMIPARESIS [None]
  - PNEUMONIA [None]
  - ATRIAL SEPTAL DEFECT [None]
  - MATERNAL EXPOSURE DURING PREGNANCY [None]
  - PERSISTENT FOETAL CIRCULATION [None]
  - CEREBRAL PALSY [None]
  - INTRAVENTRICULAR HAEMORRHAGE [None]
  - TRICUSPID VALVE INCOMPETENCE [None]
  - DEVELOPMENTAL DELAY [None]
